FAERS Safety Report 7983240-4 (Version None)
Quarter: 2011Q4

REPORT INFORMATION
  Report Type: 
  Country: None (occurrence: None)
  Receive Date: 20111215
  Receipt Date: 20111213
  Transmission Date: 20120403
  Serious: Yes (Death, Other)
  Sender: FDA-Public Use
  Company Number: PHHY2011JP51074

PATIENT
  Sex: Male
  Weight: 83 kg

DRUGS (22)
  1. ASTONIN [Concomitant]
     Indication: METASTATIC RENAL CELL CARCINOMA
     Route: 048
     Dates: start: 20081118, end: 20090301
  2. OXINORM [Concomitant]
     Indication: METASTATIC RENAL CELL CARCINOMA
     Route: 048
     Dates: start: 20101102, end: 20101102
  3. ETODOLAC [Concomitant]
     Indication: METASTATIC RENAL CELL CARCINOMA
     Dosage: 400 MG, UNK
     Route: 048
     Dates: end: 20101102
  4. LEVOFLOXACIN [Concomitant]
     Indication: PYREXIA
     Dosage: 500 MG, UNK
     Route: 048
     Dates: start: 20101019, end: 20101026
  5. LENDORMIN [Concomitant]
     Dosage: 05 MG, UNK
     Route: 048
     Dates: end: 20101102
  6. TALION [Concomitant]
     Dosage: 10 MG, UNK
     Route: 048
     Dates: end: 20101102
  7. VOLTAREN [Concomitant]
     Dosage: 75 MG, UNK
     Route: 048
     Dates: start: 20101028, end: 20101102
  8. GABAPENTIN [Concomitant]
     Indication: METASTATIC RENAL CELL CARCINOMA
     Dosage: 2400 MG, UNK
     Route: 048
     Dates: end: 20101102
  9. LANSOPRAZOLE [Concomitant]
     Dosage: 15 MG, UNK
     Route: 048
     Dates: end: 20101102
  10. TECELEUKIN [Concomitant]
     Indication: METASTATIC RENAL CELL CARCINOMA
     Dates: start: 20080903, end: 20081026
  11. PURSENNID [Concomitant]
     Dosage: 72 MG, UNK
     Route: 048
     Dates: end: 20101102
  12. INTERFERON ALFA [Concomitant]
     Indication: RENAL CELL CARCINOMA
     Dosage: 3000000 IU, UNK
  13. ALPRAZOLAM [Concomitant]
     Dosage: 0.4 MG, UNK
     Route: 048
     Dates: end: 20101102
  14. MAGNESIUM SULFATE [Concomitant]
     Dosage: 1980 MG, UNK
     Route: 048
     Dates: end: 20101102
  15. ALFA NAMALWA [Concomitant]
  16. SORAFENIB TOSILATE [Concomitant]
     Indication: METASTATIC RENAL CELL CARCINOMA
     Dosage: 800 MG, UNK
     Route: 048
     Dates: start: 20080311, end: 20080320
  17. UFT [Concomitant]
     Indication: METASTATIC RENAL CELL CARCINOMA
     Route: 048
     Dates: start: 20080903, end: 20081026
  18. TELEMINSOFT [Concomitant]
     Dosage: 4 MG, UNK
     Route: 048
     Dates: end: 20101102
  19. OXYCONTIN [Concomitant]
     Indication: METASTATIC RENAL CELL CARCINOMA
     Dosage: 320 MG, UNK
     Dates: end: 20101102
  20. AFINITOR [Suspect]
     Indication: METASTATIC RENAL CELL CARCINOMA
     Dosage: 10 MG, DAILY
     Route: 048
     Dates: start: 20101018, end: 20101102
  21. INTERFERON ALFA [Concomitant]
     Dosage: 6000000 IU, UNK
     Dates: start: 20071219, end: 20081026
  22. SUNITINIB MALATE [Concomitant]
     Indication: METASTATIC RENAL CELL CARCINOMA
     Dosage: 50 MG, UNK
     Route: 048
     Dates: start: 20090609, end: 20100928

REACTIONS (6)
  - NEOPLASM PROGRESSION [None]
  - RENAL FAILURE ACUTE [None]
  - BLOOD PRESSURE DECREASED [None]
  - PYREXIA [None]
  - URINE OUTPUT DECREASED [None]
  - NEOPLASM MALIGNANT [None]
